FAERS Safety Report 10601118 (Version 6)
Quarter: 2015Q2

REPORT INFORMATION
  Report Type: Report from Study
  Country: AR (occurrence: AR)
  Receive Date: 20141124
  Receipt Date: 20150526
  Transmission Date: 20150821
  Serious: Yes (Death, Hospitalization, Other)
  Sender: FDA-Public Use
  Company Number: PHHY2014AR144626

PATIENT
  Age: 68 Year
  Sex: Male

DRUGS (3)
  1. AFINITOR [Suspect]
     Active Substance: EVEROLIMUS
     Indication: RENAL CANCER
     Dosage: 10 MG, QD
     Route: 048
     Dates: start: 20140905, end: 20141019
  2. AFINITOR [Suspect]
     Active Substance: EVEROLIMUS
     Dosage: 5 MG, QD
     Route: 048
     Dates: start: 20141212, end: 20150131
  3. AFINITOR [Suspect]
     Active Substance: EVEROLIMUS
     Dosage: 5 MG, QD
     Route: 048
     Dates: end: 201504

REACTIONS (22)
  - Depression [Not Recovered/Not Resolved]
  - Metastases to lung [Unknown]
  - White blood cell count decreased [Not Recovered/Not Resolved]
  - Blister [Unknown]
  - Chronic obstructive pulmonary disease [Unknown]
  - Immune system disorder [Unknown]
  - Mucosal haemorrhage [Unknown]
  - Platelet count decreased [Not Recovered/Not Resolved]
  - Dysphagia [Unknown]
  - Suicidal ideation [Not Recovered/Not Resolved]
  - Tongue discolouration [Unknown]
  - Tongue pruritus [Unknown]
  - Pyrexia [Not Recovered/Not Resolved]
  - Stomatitis [Recovered/Resolved]
  - Malignant neoplasm progression [Fatal]
  - Dyspnoea [Unknown]
  - Pain [Unknown]
  - Weight decreased [Unknown]
  - Respiratory arrest [Fatal]
  - Peripheral swelling [Unknown]
  - Diarrhoea [Unknown]
  - Anaemia [Not Recovered/Not Resolved]

NARRATIVE: CASE EVENT DATE: 20141019
